FAERS Safety Report 5194274-X (Version None)
Quarter: 2006Q4

REPORT INFORMATION
  Report Type: 
  Country: None (occurrence: None)
  Receive Date: 20061228
  Receipt Date: 20061027
  Transmission Date: 20070319
  Serious: Yes (Hospitalization, Other)
  Sender: FDA-Public Use
  Company Number: CH-ABBOTT-06P-151-0348383-00

PATIENT
  Age: 47 Year
  Sex: Female
  Weight: 69 kg

DRUGS (1)
  1. CLARITHROMYCIN [Suspect]
     Indication: PNEUMONIA PRIMARY ATYPICAL
     Dosage: SIX TABLETS
     Route: 048

REACTIONS (5)
  - BLOOD BLISTER [None]
  - LEUKOCYTOCLASTIC VASCULITIS [None]
  - PALPABLE PURPURA [None]
  - SKIN LESION [None]
  - SKIN ULCER [None]
